FAERS Safety Report 6730084-7 (Version None)
Quarter: 2010Q2

REPORT INFORMATION
  Report Type: 
  Country: None (occurrence: None)
  Receive Date: 20100518
  Receipt Date: 20100510
  Transmission Date: 20101027
  Serious: Yes (Other)
  Sender: FDA-Public Use
  Company Number: ES-ALLERGAN-1006095US

PATIENT
  Age: 48 Year
  Sex: Female

DRUGS (1)
  1. VISTABEL [Suspect]
     Indication: SKIN WRINKLING
     Dosage: 41 UNITS, SINGLE
     Dates: start: 20100216, end: 20100216

REACTIONS (5)
  - BLOOD PRESSURE INCREASED [None]
  - EYE DISCHARGE [None]
  - HEADACHE [None]
  - INFLUENZA LIKE ILLNESS [None]
  - NAUSEA [None]
